FAERS Safety Report 10912512 (Version 1)
Quarter: 2015Q1

REPORT INFORMATION
  Report Type: Spontaneous
  Country: US (occurrence: None)
  Receive Date: 20150310
  Receipt Date: 20150310
  Transmission Date: 20150721
  Serious: No
  Sender: FDA-Public Use
  Company Number: None

PATIENT
  Age: 9 Year
  Sex: Female
  Weight: 25.86 kg

DRUGS (4)
  1. MULTI VITAMINS [Concomitant]
  2. STRATTERA [Concomitant]
     Active Substance: ATOMOXETINE HYDROCHLORIDE
  3. METHYLPHENIDATE HYDROCHLORIDE EX 36 MG MALLINCKRODT [Suspect]
     Active Substance: METHYLPHENIDATE HYDROCHLORIDE
     Indication: ATTENTION DEFICIT/HYPERACTIVITY DISORDER
     Dosage: 1PILL ONCE DAILY TAKEN BY MOUTH
     Route: 048
     Dates: start: 20150114, end: 20150305
  4. MELATONIN [Concomitant]
     Active Substance: MELATONIN

REACTIONS (3)
  - Product substitution issue [None]
  - Drug effect decreased [None]
  - Product quality issue [None]

NARRATIVE: CASE EVENT DATE: 20150302
